FAERS Safety Report 19857212 (Version 2)
Quarter: 2022Q1

REPORT INFORMATION
  Report Type: Spontaneous
  Country: NL (occurrence: NL)
  Receive Date: 20210920
  Receipt Date: 20220103
  Transmission Date: 20220424
  Serious: Yes (Other)
  Sender: FDA-Public Use
  Company Number: NL-RECORDATI-2021003693

PATIENT
  Sex: Female

DRUGS (2)
  1. CARIPRAZINE HYDROCHLORIDE [Suspect]
     Active Substance: CARIPRAZINE HYDROCHLORIDE
     Indication: Bipolar disorder
     Dosage: 1.5 MG
  2. LITHIUM [Concomitant]
     Active Substance: LITHIUM

REACTIONS (2)
  - Epilepsy [Recovered/Resolved]
  - Off label use [Unknown]
